FAERS Safety Report 9055651 (Version 1)
Quarter: 2013Q1

REPORT INFORMATION
  Report Type: Spontaneous
  Country: US (occurrence: US)
  Receive Date: 20130206
  Receipt Date: 20130206
  Transmission Date: 20140127
  Serious: No
  Sender: FDA-Public Use
  Company Number: US-009507513-1302USA002387

PATIENT
  Age: 35 Year
  Sex: Male

DRUGS (1)
  1. CLARITIN [Suspect]
     Indication: NASOPHARYNGITIS
     Dosage: 10 MG, ONCE
     Route: 048
     Dates: start: 20130201

REACTIONS (5)
  - Dizziness [Recovered/Resolved]
  - Pain in extremity [Recovered/Resolved]
  - Feeling cold [Recovered/Resolved]
  - Unevaluable event [Recovered/Resolved]
  - Off label use [Recovered/Resolved]
